FAERS Safety Report 9064899 (Version 1)
Quarter: 2013Q1

REPORT INFORMATION
  Report Type: Spontaneous
  Country: US (occurrence: US)
  Receive Date: 20130128
  Receipt Date: 20130128
  Transmission Date: 20140127
  Serious: Yes (Other)
  Sender: FDA-Public Use
  Company Number: US-JNJFOC-20130110062

PATIENT
  Age: 45 Year
  Sex: Female
  Weight: 79.38 kg

DRUGS (1)
  1. LUBRIDERM DAILY MOISTURIZER WITH SUNSCREEN SPF15 [Suspect]
     Indication: PRODUCT USED FOR UNKNOWN INDICATION
     Route: 061
     Dates: end: 20130106

REACTIONS (2)
  - Hypersensitivity [Recovering/Resolving]
  - Thermal burn [Recovering/Resolving]
